FAERS Safety Report 15479789 (Version 1)
Quarter: 2018Q4

REPORT INFORMATION
  Report Type: Spontaneous
  Country: FR (occurrence: FR)
  Receive Date: 20181009
  Receipt Date: 20181009
  Transmission Date: 20190205
  Serious: Yes (Hospitalization)
  Sender: FDA-Public Use
  Company Number: FR-GLAXOSMITHKLINE-FR2018179504

PATIENT
  Age: 45 Year
  Sex: Male
  Weight: 95 kg

DRUGS (2)
  1. LAMICTAL [Suspect]
     Active Substance: LAMOTRIGINE
     Indication: TOXICITY TO VARIOUS AGENTS
     Dosage: 2 G, UNK
     Route: 048
     Dates: start: 20180918, end: 20180918
  2. XANAX [Suspect]
     Active Substance: ALPRAZOLAM
     Indication: TOXICITY TO VARIOUS AGENTS
     Dosage: 7.5 MG, UNK
     Route: 048
     Dates: start: 20180918, end: 20180918

REACTIONS (3)
  - Toxicity to various agents [Unknown]
  - Headache [Unknown]
  - Strabismus [Unknown]

NARRATIVE: CASE EVENT DATE: 20180918
